FAERS Safety Report 8533354-5 (Version None)
Quarter: 2012Q3

REPORT INFORMATION
  Report Type: 
  Country: None (occurrence: None)
  Receive Date: 20120724
  Receipt Date: 20120713
  Transmission Date: 20120928
  Serious: Yes (Hospitalization)
  Sender: FDA-Public Use
  Company Number: FR-SANOFI-AVENTIS-2012SA049926

PATIENT
  Age: 86 Year
  Sex: Male

DRUGS (9)
  1. PRAVASTATIN [Concomitant]
  2. NITRODERM [Concomitant]
  3. METFORMIN HCL [Concomitant]
     Indication: TYPE 2 DIABETES MELLITUS
     Dates: end: 20120617
  4. AMARYL [Suspect]
     Indication: TYPE 2 DIABETES MELLITUS
     Route: 048
     Dates: start: 20120615, end: 20120617
  5. RAMIPRIL [Concomitant]
  6. PREVISCAN [Concomitant]
  7. ZOLPIDEM TARTRATE [Concomitant]
  8. BISOPROLOL FUMARATE [Concomitant]
  9. ACETAMINOPHEN [Concomitant]

REACTIONS (2)
  - SALIVARY HYPERSECRETION [None]
  - DISTURBANCE IN ATTENTION [None]
